FAERS Safety Report 4411014-X (Version None)
Quarter: 2004Q3

REPORT INFORMATION
  Report Type: 
  Country: None (occurrence: None)
  Receive Date: 20040726
  Receipt Date: 20040712
  Transmission Date: 20050211
  Serious: No
  Sender: FDA-Public Use
  Company Number: 2004-BP-05551BP

PATIENT
  Age: 44 Year
  Sex: Female

DRUGS (3)
  1. VIRAMUNE [Suspect]
     Indication: HIV INFECTION
     Dates: start: 20030425
  2. STAVUDINE (STAVUDINE) [Suspect]
     Indication: HIV INFECTION
     Dates: start: 20030425
  3. LAMIVUDINE (LAMIVUDINE) [Suspect]
     Indication: HIV INFECTION
     Dates: start: 20030425

REACTIONS (1)
  - NEUROPATHY PERIPHERAL [None]
